FAERS Safety Report 20165736 (Version 14)
Quarter: 2022Q2

REPORT INFORMATION
  Report Type: Report from Study
  Country: EG (occurrence: EG)
  Receive Date: 20211209
  Receipt Date: 20220530
  Transmission Date: 20220721
  Serious: Yes (Life-Threatening, Other)
  Sender: FDA-Public Use
  Company Number: EG-JNJFOC-20211209125

PATIENT
  Age: 35 Year
  Sex: Male

DRUGS (10)
  1. ESKETAMINE [Suspect]
     Active Substance: ESKETAMINE
     Indication: Product used for unknown indication
     Dates: start: 20211108
  2. ESKETAMINE [Suspect]
     Active Substance: ESKETAMINE
     Dates: start: 20211127
  3. ESKETAMINE [Suspect]
     Active Substance: ESKETAMINE
     Dates: start: 20220214
  4. ESKETAMINE [Suspect]
     Active Substance: ESKETAMINE
     Dosage: LAST SESSION
     Dates: start: 20220418
  5. ESZOPICLONE [Concomitant]
     Active Substance: ESZOPICLONE
     Indication: Product used for unknown indication
     Dosage: 60 PILLS
     Route: 048
  6. CEPHALEXIN [Concomitant]
     Active Substance: CEPHALEXIN
     Indication: Product used for unknown indication
     Dosage: 8 PILLS
     Route: 048
  7. TERFENADINE [Concomitant]
     Active Substance: TERFENADINE
     Indication: Product used for unknown indication
     Dosage: 2 PILS
     Route: 048
  8. DICLOFENAC SODIUM [Concomitant]
     Active Substance: DICLOFENAC SODIUM
     Indication: Product used for unknown indication
     Dosage: 3 PILLS
     Route: 048
  9. MELATONIN [Concomitant]
     Active Substance: MELATONIN
     Indication: Product used for unknown indication
     Route: 065
     Dates: start: 20220102
  10. CALMEPAM [Concomitant]
     Indication: Product used for unknown indication
     Route: 065
     Dates: start: 20220309

REACTIONS (14)
  - Suicide attempt [Unknown]
  - Hallucination [Not Recovered/Not Resolved]
  - Seizure [Not Recovered/Not Resolved]
  - Syncope [Not Recovered/Not Resolved]
  - Dyspnoea [Not Recovered/Not Resolved]
  - Panic disorder [Not Recovered/Not Resolved]
  - Cognitive disorder [Unknown]
  - Back pain [Not Recovered/Not Resolved]
  - Product dose omission issue [Unknown]
  - Crying [Unknown]
  - Depression [Not Recovered/Not Resolved]
  - Depressed mood [Not Recovered/Not Resolved]
  - Fatigue [Not Recovered/Not Resolved]
  - Therapeutic product effect decreased [Unknown]

NARRATIVE: CASE EVENT DATE: 20211125
